FAERS Safety Report 9755399 (Version 1)
Quarter: 2013Q4

REPORT INFORMATION
  Report Type: Spontaneous
  Country: US (occurrence: US)
  Receive Date: 20131213
  Receipt Date: 20131213
  Transmission Date: 20140711
  Serious: No
  Sender: FDA-Public Use
  Company Number: US-GLAXOSMITHKLINE-A1017567A

PATIENT
  Sex: Male

DRUGS (1)
  1. NICOTINE [Suspect]
     Route: 062

REACTIONS (9)
  - Panic attack [Unknown]
  - Ill-defined disorder [Unknown]
  - Decreased appetite [Unknown]
  - Ill-defined disorder [Unknown]
  - Pharyngeal disorder [Unknown]
  - Tongue disorder [Unknown]
  - Anxiety [Unknown]
  - Drug administration error [Unknown]
  - Overdose [Unknown]
